FAERS Safety Report 10427149 (Version 3)
Quarter: 2014Q4

REPORT INFORMATION
  Report Type: Spontaneous
  Country: US (occurrence: US)
  Receive Date: 20140903
  Receipt Date: 20141013
  Transmission Date: 20150528
  Serious: Yes (Other)
  Sender: FDA-Public Use
  Company Number: US-AMGEN-USASP2014065761

PATIENT
  Age: 59 Year
  Sex: Female
  Weight: 47.62 kg

DRUGS (7)
  1. HYDROCORTISONE. [Concomitant]
     Active Substance: HYDROCORTISONE
  2. RITUXAN [Concomitant]
     Active Substance: RITUXIMAB
     Dosage: UNK
  3. NPLATE [Suspect]
     Active Substance: ROMIPLOSTIM
     Indication: IMMUNE THROMBOCYTOPENIC PURPURA
     Dosage: 380 UNK, QWK
     Route: 058
     Dates: start: 201305, end: 20140827
  4. CYCLOSPORINE. [Concomitant]
     Active Substance: CYCLOSPORINE
     Dosage: UNK
  5. PREDNISONE. [Concomitant]
     Active Substance: PREDNISONE
     Dosage: UNK
  6. ESTRADIOL. [Concomitant]
     Active Substance: ESTRADIOL
     Indication: HORMONE REPLACEMENT THERAPY
     Dosage: 0.5 UNK, BID
  7. VITAMIN D3 [Concomitant]
     Active Substance: CHOLECALCIFEROL
     Dosage: 2000 UNIT, UNK
     Route: 048

REACTIONS (5)
  - Therapeutic response decreased [Not Recovered/Not Resolved]
  - Haemorrhage [Not Recovered/Not Resolved]
  - Drug eruption [Unknown]
  - Platelet count decreased [Not Recovered/Not Resolved]
  - Multiple allergies [Unknown]

NARRATIVE: CASE EVENT DATE: 20140618
